FAERS Safety Report 24311838 (Version 4)
Quarter: 2025Q1

REPORT INFORMATION
  Report Type: Spontaneous
  Country: US (occurrence: US)
  Receive Date: 20240912
  Receipt Date: 20250312
  Transmission Date: 20250408
  Serious: Yes (Hospitalization)
  Sender: SANOFI AVENTIS
  Company Number: US-SA-2024SA263026

PATIENT
  Age: 61 Year
  Sex: Female

DRUGS (2)
  1. DUPIXENT [Suspect]
     Active Substance: DUPILUMAB
     Indication: Nasal polyps
     Dosage: 300 MG, QOW
     Route: 058
     Dates: start: 20240815, end: 2025
  2. DUPIXENT [Suspect]
     Active Substance: DUPILUMAB
     Indication: Asthma
     Dosage: 300 MG, QOW
     Route: 058
     Dates: start: 20250310

REACTIONS (9)
  - Localised infection [Not Recovered/Not Resolved]
  - Dehydration [Unknown]
  - Dry throat [Unknown]
  - Nasal dryness [Unknown]
  - Rhinorrhoea [Unknown]
  - Condition aggravated [Unknown]
  - Rhinitis [Unknown]
  - Injection site bruising [Unknown]
  - Asthma [Unknown]

NARRATIVE: CASE EVENT DATE: 20240101
